FAERS Safety Report 11852211 (Version 3)
Quarter: 2016Q1

REPORT INFORMATION
  Report Type: Report from Study
  Country: US (occurrence: US)
  Receive Date: 20151218
  Receipt Date: 20160317
  Transmission Date: 20160526
  Serious: Yes (Hospitalization, Other)
  Sender: FDA-Public Use
  Company Number: US-BAYER-2015-489917

PATIENT
  Age: 75 Year
  Sex: Male

DRUGS (2)
  1. STIVARGA [Suspect]
     Active Substance: REGORAFENIB
     Indication: COLON CANCER
     Dosage: 160 MG, QD
     Route: 048
     Dates: start: 201512
  2. STIVARGA [Suspect]
     Active Substance: REGORAFENIB
     Indication: COLON CANCER
     Dosage: 160 MG, QD
     Route: 048
     Dates: start: 20151130, end: 20151209

REACTIONS (6)
  - Drug dose omission [None]
  - Influenza like illness [None]
  - Adverse drug reaction [None]
  - Stomatitis [None]
  - Intentional product misuse [None]
  - Dyspnoea [None]

NARRATIVE: CASE EVENT DATE: 20151209
